FAERS Safety Report 8843795 (Version 1)
Quarter: 2012Q4

REPORT INFORMATION
  Report Type: Report from Study
  Country: GB (occurrence: GB)
  Receive Date: 20121016
  Receipt Date: 20121016
  Transmission Date: 20130627
  Serious: Yes (Hospitalization)
  Sender: FDA-Public Use
  Company Number: GB-009507513-1210GBR002565

PATIENT
  Age: 25 Year
  Sex: Female

DRUGS (12)
  1. DEXAMETHASONE TABLETS BP  2.0MG [Suspect]
     Dosage: UNK
     Route: 048
     Dates: start: 20101119, end: 20101220
  2. CRIZOTINIB [Suspect]
     Indication: NON-SMALL CELL LUNG CANCER
     Dosage: 250 mg, bid
     Route: 048
     Dates: start: 20101201, end: 20101222
  3. CRIZOTINIB [Suspect]
     Dosage: UNK
     Route: 048
     Dates: start: 20110105
  4. OXYCONTIN [Concomitant]
     Indication: PAIN
     Dosage: UNK
     Route: 048
     Dates: start: 20100401
  5. SENNA [Concomitant]
     Indication: CONSTIPATION
     Dosage: UNK
     Route: 048
     Dates: start: 20100401
  6. DOCUSATE SODIUM [Concomitant]
     Indication: CONSTIPATION
     Dosage: UNK
     Route: 048
     Dates: start: 20100401
  7. ACETAMINOPHEN [Concomitant]
     Indication: PAIN
     Dosage: UNK
     Route: 048
     Dates: start: 20100315
  8. PREGABALIN [Concomitant]
     Indication: PAIN
     Dosage: UNK
     Route: 048
     Dates: start: 20100315
  9. CLEXANE (ENOXAPARIN SODIUM) [Concomitant]
     Indication: THROMBOSIS
     Dosage: UNK
     Route: 048
     Dates: start: 20100413
  10. OXYNORM [Concomitant]
     Indication: PAIN
     Dosage: UNK
     Route: 048
     Dates: start: 20100407
  11. ABSTRAL [Concomitant]
     Indication: PAIN
     Dosage: UNK
     Route: 048
     Dates: start: 20101119
  12. HEPARIN [Concomitant]
     Route: 048

REACTIONS (1)
  - Lower respiratory tract infection [Recovered/Resolved]
